FAERS Safety Report 5936088-6 (Version None)
Quarter: 2008Q4

REPORT INFORMATION
  Report Type: 
  Country: None (occurrence: None)
  Receive Date: 20081030
  Receipt Date: 20081023
  Transmission Date: 20090506
  Serious: Yes (Other)
  Sender: FDA-Public Use
  Company Number: PHEH2008US07289

PATIENT
  Sex: Female
  Weight: 71.202 kg

DRUGS (7)
  1. PARLODEL [Suspect]
     Dosage: 2.5 MG, QD
  2. PROTONIX [Concomitant]
     Dosage: 40 MG, QD
  3. ARTHROTEC [Concomitant]
     Indication: ARTHRITIS
     Dosage: 200 MG, QD
     Route: 048
  4. CLIMARA [Concomitant]
     Indication: MENOPAUSE
     Dosage: UNK
     Route: 062
  5. KLONOPIN [Concomitant]
     Indication: ANXIETY
     Dosage: 1 MG HS AND 0.5 MG IN THE MORNING
     Route: 048
     Dates: start: 20070101
  6. LYRICA [Concomitant]
  7. XANAX [Concomitant]
     Dosage: 10 MG, QD

REACTIONS (3)
  - ANKLE FRACTURE [None]
  - IMPAIRED HEALING [None]
  - SURGERY [None]
